FAERS Safety Report 13961882 (Version 2)
Quarter: 2017Q3

REPORT INFORMATION
  Report Type: Spontaneous
  Country: AT (occurrence: AT)
  Receive Date: 20170912
  Receipt Date: 20170921
  Transmission Date: 20171128
  Serious: Yes (Hospitalization, Other)
  Sender: FDA-Public Use
  Company Number: AT-SHIRE-AT201721638

PATIENT

DRUGS (1)
  1. FIRAZYR [Suspect]
     Active Substance: ICATIBANT ACETATE
     Indication: HEREDITARY ANGIOEDEMA
     Dosage: UNK
     Route: 065

REACTIONS (3)
  - Intestinal obstruction [Unknown]
  - Weight decreased [Unknown]
  - Drug ineffective [Unknown]
